FAERS Safety Report 7396897-6 (Version None)
Quarter: 2011Q2

REPORT INFORMATION
  Report Type: 
  Country: None (occurrence: None)
  Receive Date: 20110406
  Receipt Date: 20101205
  Transmission Date: 20111010
  Serious: No
  Sender: FDA-Public Use
  Company Number: US-BAYER-2010-006349

PATIENT
  Sex: Male
  Weight: 77 kg

DRUGS (1)
  1. ALKA-SELTZER ORIGINAL [Suspect]
     Indication: NASOPHARYNGITIS
     Dosage: COUNT BOTTLE UNKNOWN
     Route: 048
     Dates: start: 20101205

REACTIONS (1)
  - NAUSEA [None]
